FAERS Safety Report 6896793-4 (Version None)
Quarter: 2010Q3

REPORT INFORMATION
  Report Type: 
  Country: None (occurrence: None)
  Receive Date: 20100802
  Receipt Date: 20070305
  Transmission Date: 20110219
  Serious: Yes (Other)
  Sender: FDA-Public Use
  Company Number: US-PFIZER INC-2006149522

PATIENT
  Sex: Female
  Weight: 72.6 kg

DRUGS (17)
  1. LYRICA [Suspect]
     Indication: NEURALGIA
     Route: 048
     Dates: start: 20060901, end: 20061001
  2. LYRICA [Suspect]
     Indication: BONE GRAFT
     Dates: start: 20070106
  3. LYRICA [Suspect]
     Indication: RHEUMATOID ARTHRITIS
  4. LYRICA [Suspect]
     Indication: INTERVERTEBRAL DISC DEGENERATION
  5. ALDACTONE [Concomitant]
  6. LISINOPRIL [Concomitant]
  7. NORVASC [Concomitant]
  8. CLONIDINE [Concomitant]
  9. ZANAFLEX [Concomitant]
  10. ZANTAC [Concomitant]
  11. ETANERCEPT [Concomitant]
  12. MONTELUKAST SODIUM [Concomitant]
  13. AMBIEN [Concomitant]
  14. KLONOPIN [Concomitant]
  15. VICODIN ES [Concomitant]
     Dates: end: 20060101
  16. LORTAB [Concomitant]
     Dates: start: 20060101
  17. CLONIDINE [Concomitant]

REACTIONS (6)
  - ACTIVITIES OF DAILY LIVING IMPAIRED [None]
  - DIZZINESS [None]
  - INSOMNIA [None]
  - NAUSEA [None]
  - PAIN [None]
  - VISION BLURRED [None]
